FAERS Safety Report 5671748-6 (Version None)
Quarter: 2008Q1

REPORT INFORMATION
  Report Type: 
  Country: None (occurrence: None)
  Receive Date: 20080314
  Receipt Date: 20080303
  Transmission Date: 20080703
  Serious: Yes (Hospitalization)
  Sender: FDA-Public Use
  Company Number: 232155J08USA

PATIENT
  Age: 53 Year
  Sex: Female
  Weight: 86.1834 kg

DRUGS (7)
  1. REBIF [Suspect]
     Indication: MULTIPLE SCLEROSIS
     Dosage: 44 MCG, 3 IN 1 WEEKS,SUBCUTANEOUS
     Route: 058
     Dates: start: 20060201, end: 20071201
  2. REBIF [Suspect]
     Indication: MULTIPLE SCLEROSIS
     Dosage: 44 MCG, 3 IN 1 WEEKS,SUBCUTANEOUS
     Route: 058
     Dates: start: 20080101
  3. NEURONTIN [Concomitant]
  4. BACLOFEN [Concomitant]
  5. LORAZEPAM [Concomitant]
  6. DIOVAN-HYDROCHLOROTHIAZIDE (CO-DIOVAN) [Concomitant]
  7. NAPROSYN [Concomitant]

REACTIONS (7)
  - BLOOD GLUCOSE INCREASED [None]
  - BRONCHOPNEUMONIA [None]
  - CONDITION AGGRAVATED [None]
  - INJECTION SITE ERYTHEMA [None]
  - INJECTION SITE PAIN [None]
  - MULTIPLE SCLEROSIS [None]
  - UPPER RESPIRATORY TRACT INFECTION [None]
